FAERS Safety Report 20001892 (Version 3)
Quarter: 2022Q1

REPORT INFORMATION
  Report Type: Report from Study
  Country: JP (occurrence: JP)
  Receive Date: 20211027
  Receipt Date: 20220203
  Transmission Date: 20220423
  Serious: Yes (Life-Threatening, Hospitalization, Other)
  Sender: FDA-Public Use
  Company Number: JP-VIIV HEALTHCARE LIMITED-JP2021JPN221760

PATIENT
  Age: 34 Year
  Sex: Male

DRUGS (11)
  1. DOLUTEGRAVIR [Suspect]
     Active Substance: DOLUTEGRAVIR
     Indication: HIV infection
     Dosage: 50 MG, 1D
     Dates: start: 20151128
  2. DESCOVY [Suspect]
     Active Substance: EMTRICITABINE\TENOFOVIR ALAFENAMIDE FUMARATE
     Indication: HIV infection
     Dosage: 1 DF, 1D
     Dates: start: 20170520
  3. TRUVADA [Suspect]
     Active Substance: EMTRICITABINE\TENOFOVIR DISOPROXIL FUMARATE
     Indication: HIV infection
     Dosage: 1 DF, 1D
     Dates: start: 20121116, end: 20170519
  4. SAWACILLIN CAPSULES 250 [Concomitant]
     Dosage: UNK
     Dates: start: 20151128, end: 20151205
  5. SAWACILLIN CAPSULES 250 [Concomitant]
     Dosage: UNK
     Dates: start: 20170520, end: 20170527
  6. PL COMBINATION GRANULE [Concomitant]
     Dosage: UNK
     Dates: start: 20151128, end: 20151205
  7. PL COMBINATION GRANULE [Concomitant]
     Dosage: UNK
     Dates: start: 20161001, end: 20161008
  8. PL COMBINATION GRANULE [Concomitant]
     Dosage: UNK
     Dates: start: 20170520, end: 20170527
  9. TRANSAMIN CAPSULES [Concomitant]
     Dosage: UNK
     Dates: start: 20151128, end: 20151205
  10. TRANSAMIN CAPSULES [Concomitant]
     Dosage: UNK
     Dates: start: 20161001, end: 20161008
  11. TRANSAMIN CAPSULES [Concomitant]
     Dosage: UNK
     Dates: start: 20170520, end: 20170527

REACTIONS (5)
  - Suicidal ideation [Recovered/Resolved]
  - Amoebiasis [Recovered/Resolved]
  - Nasopharyngitis [Recovered/Resolved]
  - Pharyngitis [Recovered/Resolved]
  - Diarrhoea [Recovered/Resolved]

NARRATIVE: CASE EVENT DATE: 20161001
